FAERS Safety Report 12072718 (Version 4)
Quarter: 2016Q1

REPORT INFORMATION
  Report Type: Other
  Country: TW (occurrence: TW)
  Receive Date: 20160212
  Receipt Date: 20160323
  Transmission Date: 20160526
  Serious: Yes (Death)
  Sender: FDA-Public Use
  Company Number: TW-UNITED THERAPEUTICS-UNT-2016-001833

PATIENT
  Sex: Female
  Weight: 60 kg

DRUGS (1)
  1. REMODULIN [Suspect]
     Active Substance: TREPROSTINIL
     Indication: PULMONARY ARTERIAL HYPERTENSION
     Dosage: 0.030 ?G/KG, CONTINUING
     Route: 058
     Dates: start: 20160106, end: 20160205

REACTIONS (2)
  - Blood pressure decreased [Unknown]
  - Heart rate decreased [Fatal]

NARRATIVE: CASE EVENT DATE: 20160106
